FAERS Safety Report 13716655 (Version 1)
Quarter: 2017Q3

REPORT INFORMATION
  Report Type: Spontaneous
  Country: US (occurrence: US)
  Receive Date: 20170705
  Receipt Date: 20170705
  Transmission Date: 20171127
  Serious: No
  Sender: FDA-Public Use
  Company Number: US-TEVA-753472ACC

PATIENT
  Age: 70 Year
  Sex: Female
  Weight: 71.28 kg

DRUGS (6)
  1. HYDROCHLOROTHIAZIDE. [Concomitant]
     Active Substance: HYDROCHLOROTHIAZIDE
  2. PRAVASTATIN. [Concomitant]
     Active Substance: PRAVASTATIN
  3. NABUMETONE. [Suspect]
     Active Substance: NABUMETONE
     Indication: NEURALGIA
     Dates: start: 201111, end: 20160317
  4. PRAVASTATIN (CONJUGATED ESTROGENS) [Concomitant]
  5. TOPIRAMATE. [Concomitant]
     Active Substance: TOPIRAMATE
  6. AMLODIPINE BESILATE [Concomitant]
     Active Substance: AMLODIPINE BESYLATE
     Dosage: 10 MILLIGRAM DAILY;

REACTIONS (2)
  - Nasal septum deviation [Unknown]
  - Epistaxis [Recovered/Resolved]

NARRATIVE: CASE EVENT DATE: 2013
